FAERS Safety Report 5546431-8 (Version None)
Quarter: 2007Q4

REPORT INFORMATION
  Report Type: 
  Country: None (occurrence: None)
  Receive Date: 20071206
  Receipt Date: 20071206
  Transmission Date: 20080405
  Serious: No
  Sender: FDA-Public Use
  Company Number: None

PATIENT
  Age: 11 Year
  Sex: Female
  Weight: 36.2878 kg

DRUGS (2)
  1. ALBUTEROL [Suspect]
     Indication: DYSPNOEA
     Dosage: UD OTHER
     Route: 050
     Dates: start: 20071203, end: 20071203
  2. ALBUTEROL [Suspect]
     Indication: SPIROMETRY
     Dosage: UD OTHER
     Route: 050
     Dates: start: 20071203, end: 20071203

REACTIONS (2)
  - DYSPNOEA [None]
  - MUSCLE CONTRACTIONS INVOLUNTARY [None]
